FAERS Safety Report 13153622 (Version 2)
Quarter: 2017Q2

REPORT INFORMATION
  Report Type: Report from Study
  Country: US (occurrence: US)
  Receive Date: 20170126
  Receipt Date: 20170412
  Transmission Date: 20170830
  Serious: Yes (Other)
  Sender: FDA-Public Use
  Company Number: US-AMGEN-USASL2017011443

PATIENT
  Age: 53 Year
  Sex: Female
  Weight: 85.27 kg

DRUGS (1)
  1. REPATHA [Suspect]
     Active Substance: EVOLOCUMAB
     Indication: BLOOD CHOLESTEROL INCREASED
     Dosage: 140 MG, ONCE
     Route: 058
     Dates: start: 20161230, end: 20161230

REACTIONS (6)
  - Hallucination [Recovered/Resolved]
  - Vomiting projectile [Unknown]
  - Feeling cold [Unknown]
  - Unevaluable event [Unknown]
  - Nausea [Recovered/Resolved]
  - Chills [Recovered/Resolved]

NARRATIVE: CASE EVENT DATE: 201612
